FAERS Safety Report 15598369 (Version 1)
Quarter: 2018Q4

REPORT INFORMATION
  Report Type: Spontaneous
  Country: IT (occurrence: IT)
  Receive Date: 20181108
  Receipt Date: 20181108
  Transmission Date: 20190205
  Serious: Yes (Hospitalization, Other)
  Sender: FDA-Public Use
  Company Number: IT-SA-2018SA303913

PATIENT
  Age: 76 Year
  Sex: Female

DRUGS (6)
  1. FERLIXIT [Suspect]
     Active Substance: SODIUM FERRIC GLUCONATE COMPLEX
     Indication: IRON DEFICIENCY ANAEMIA
     Dosage: 2 DF, TOTAL
     Route: 042
     Dates: start: 20181025, end: 20181025
  2. PANTOPRAZOLE [Concomitant]
     Active Substance: PANTOPRAZOLE
  3. METFORAL [Concomitant]
     Active Substance: METFORMIN HYDROCHLORIDE
     Dosage: 2 G
     Route: 048
  4. EZETIMIBE/SIMVASTATINA [Concomitant]
  5. CARDIRENE [Concomitant]
     Active Substance: ASPIRIN DL-LYSINE
  6. FOSIPRES [Concomitant]
     Active Substance: FOSINOPRIL

REACTIONS (4)
  - Chest pain [Recovering/Resolving]
  - Depressed level of consciousness [Recovering/Resolving]
  - Hypotension [Recovering/Resolving]
  - Malaise [Recovering/Resolving]

NARRATIVE: CASE EVENT DATE: 20181025
